FAERS Safety Report 5443453-2 (Version None)
Quarter: 2007Q3

REPORT INFORMATION
  Report Type: 
  Country: None (occurrence: None)
  Receive Date: 20070905
  Receipt Date: 20070823
  Transmission Date: 20080115
  Serious: Yes (Other)
  Sender: FDA-Public Use
  Company Number: US-MERCK-0708USA05862

PATIENT
  Age: 38 Year
  Sex: Female

DRUGS (4)
  1. CRIXIVAN [Suspect]
     Route: 065
  2. LAMIVUDINE [Concomitant]
     Route: 065
  3. RITONAVIR [Concomitant]
     Route: 065
  4. ZIDOVUDINE [Concomitant]
     Route: 065

REACTIONS (2)
  - ABORTION SPONTANEOUS [None]
  - DRUG EXPOSURE DURING PREGNANCY [None]
